FAERS Safety Report 11325736 (Version 1)
Quarter: 2015Q3

REPORT INFORMATION
  Report Type: Spontaneous
  Country: SI (occurrence: SI)
  Receive Date: 20150731
  Receipt Date: 20150731
  Transmission Date: 20151125
  Serious: Yes (Life-Threatening)
  Sender: FDA-Public Use
  Company Number: SI-ORION CORPORATION ORION PHARMA-ENTC2015-0410

PATIENT
  Age: 81 Year
  Sex: Male

DRUGS (8)
  1. MERONEM [Concomitant]
     Active Substance: MEROPENEM
     Route: 065
  2. FLUCLOXACILLIN [Concomitant]
     Active Substance: FLUCLOXACILLIN
     Route: 065
  3. STALEVO [Suspect]
     Active Substance: CARBIDOPA\ENTACAPONE\LEVODOPA
     Indication: PARKINSON^S DISEASE
     Dosage: STRENGTH: 100/25/200 MG
     Route: 048
     Dates: start: 20150701, end: 20150714
  4. CLEXANE [Concomitant]
     Active Substance: ENOXAPARIN SODIUM
     Route: 058
  5. PERFALGAN [Concomitant]
     Active Substance: ACETAMINOPHEN
     Route: 065
  6. NAKOM MITE [Suspect]
     Active Substance: CARBIDOPA\LEVODOPA
     Indication: PARKINSON^S DISEASE
     Dosage: STRENGTH: 250 +25 MG
     Route: 048
     Dates: start: 20150701, end: 20150714
  7. ACTRAPID [Concomitant]
     Active Substance: INSULIN HUMAN
     Route: 065
  8. PANTOPRAZOLE [Concomitant]
     Active Substance: PANTOPRAZOLE SODIUM
     Route: 065

REACTIONS (4)
  - Wrong technique in product usage process [Unknown]
  - Bronchospasm [Recovered/Resolved]
  - Product use issue [Unknown]
  - Cardiovascular disorder [Recovered/Resolved]

NARRATIVE: CASE EVENT DATE: 20150701
